FAERS Safety Report 6866909-4 (Version None)
Quarter: 2010Q3

REPORT INFORMATION
  Report Type: 
  Country: None (occurrence: None)
  Receive Date: 20100722
  Receipt Date: 20100722
  Transmission Date: 20110219
  Serious: No
  Sender: FDA-Public Use
  Company Number: None

PATIENT
  Sex: Female
  Weight: 58.9676 kg

DRUGS (2)
  1. BONIVA [Suspect]
     Dosage: 150 MG MONTHLY
     Dates: start: 20050901, end: 20071201
  2. RECLAST [Concomitant]

REACTIONS (2)
  - FEAR [None]
  - TOOTH EXTRACTION [None]
